FAERS Safety Report 5417244-2 (Version None)
Quarter: 2007Q3

REPORT INFORMATION
  Report Type: 
  Country: None (occurrence: None)
  Receive Date: 20070816
  Receipt Date: 20070807
  Transmission Date: 20080115
  Serious: Yes (Other)
  Sender: FDA-Public Use
  Company Number: US-SHR-US-2007-025764

PATIENT
  Age: 37 Year
  Sex: Female

DRUGS (5)
  1. BETASERON [Suspect]
     Indication: RELAPSING-REMITTING MULTIPLE SCLEROSIS
     Dosage: 4 MIU, EVERY 2D
     Route: 058
     Dates: start: 20070723
  2. BETASERON [Suspect]
     Dosage: UNK, UNK
     Route: 058
     Dates: start: 20020524, end: 20050524
  3. BETASERON [Suspect]
     Dosage: 2 MIU, EVERY 2D
     Route: 058
     Dates: start: 20070709
  4. BETASERON [Suspect]
     Dosage: 8 MIU, EVERY 2D
     Route: 058
  5. OXYTROL [Concomitant]

REACTIONS (4)
  - INJECTION SITE ERYTHEMA [None]
  - OPTIC NEURITIS [None]
  - PAIN [None]
  - PYREXIA [None]
